FAERS Safety Report 17478067 (Version 5)
Quarter: 2020Q2

REPORT INFORMATION
  Report Type: Report from Study
  Country: None (occurrence: US)
  Receive Date: 20200229
  Receipt Date: 20200427
  Transmission Date: 20200713
  Serious: Yes (Hospitalization)
  Sender: FDA-Public Use
  Company Number: US-INSMED, INC.-US-INS-20-00430

PATIENT
  Age: 65 Year
  Sex: Female

DRUGS (3)
  1. ARIKAYCE [Suspect]
     Active Substance: AMIKACIN
     Route: 055
     Dates: start: 2020
  2. LAMIRA NEBULIZER SYSTEM [Suspect]
     Active Substance: DEVICE
  3. ARIKAYCE [Suspect]
     Active Substance: AMIKACIN
     Indication: PRODUCT USED FOR UNKNOWN INDICATION
     Route: 055
     Dates: start: 20200125, end: 2020

REACTIONS (9)
  - Hospitalisation [Recovered/Resolved]
  - Tachycardia [Unknown]
  - Product packaging difficult to open [Unknown]
  - Blood creatine decreased [Unknown]
  - Haemorrhage [Unknown]
  - Limb injury [Unknown]
  - Therapy interrupted [Unknown]
  - Product package associated injury [Unknown]
  - Haemoglobin decreased [Unknown]

NARRATIVE: CASE EVENT DATE: 2020
